APPROVED DRUG PRODUCT: TOPICYCLINE
Active Ingredient: TETRACYCLINE HYDROCHLORIDE
Strength: 2.2MG/ML
Dosage Form/Route: FOR SOLUTION;TOPICAL
Application: N050493 | Product #001
Applicant: SHIRE DEVELOPMENT INC
Approved: Approved Prior to Jan 1, 1982 | RLD: No | RS: No | Type: DISCN